FAERS Safety Report 8375248 (Version 4)
Quarter: 2013Q3

REPORT INFORMATION
  Report Type: Report from Study
  Country: US (occurrence: US)
  Receive Date: 20120129
  Receipt Date: 20130702
  Transmission Date: 20140515
  Serious: Yes (Hospitalization)
  Sender: FDA-Public Use
  Company Number: US-ABBOTT-11P-163-0884682-00

PATIENT
  Age: 67 Year
  Sex: Female
  Weight: 78.54 kg

DRUGS (19)
  1. HUMIRA 40 MG/0.8 ML PEN [Suspect]
     Indication: CROHN^S DISEASE
     Dates: start: 20110919, end: 201204
  2. HUMIRA 40 MG/0.8 ML PEN [Suspect]
     Dosage: 160 MG
     Dates: start: 20130508, end: 20130508
  3. VITAMIN B12 [Concomitant]
     Indication: PRODUCT USED FOR UNKNOWN INDICATION
     Route: 050
  4. CAPOTEN [Concomitant]
     Indication: CARDIOMYOPATHY
  5. COREG [Concomitant]
     Indication: CARDIOMYOPATHY
     Dosage: 12/5 MG
  6. ESTROGEN [Concomitant]
     Indication: OESTROGEN REPLACEMENT THERAPY
     Route: 062
  7. FOLIC ACID [Concomitant]
     Indication: VITAMIN SUPPLEMENTATION
  8. LASIX [Concomitant]
     Indication: CARDIOMYOPATHY
  9. VENLAFAXINE [Concomitant]
     Indication: DEPRESSION
  10. LANSOPRAZOLE [Concomitant]
     Indication: DYSPEPSIA
  11. MORPHINE SULFATE [Concomitant]
     Indication: ARTHRITIS
     Dosage: WEANED OFF
  12. MORPHINE SULFATE [Concomitant]
     Indication: PAIN
  13. MIRALAX [Concomitant]
     Indication: CROHN^S DISEASE
  14. SPIRONOLACTONE [Concomitant]
     Indication: CARDIOMYOPATHY
  15. VICODIN [Concomitant]
     Indication: PAIN
  16. XANAX [Concomitant]
     Indication: ANXIETY
  17. XANAX [Concomitant]
     Indication: PALPITATIONS
  18. AMBIEN [Concomitant]
     Indication: INSOMNIA
     Dosage: AT BEDTIME
  19. SOMINEX [Concomitant]
     Indication: INSOMNIA
     Dosage: AT BEDTIME
     Dates: start: 201304

REACTIONS (10)
  - Intestinal obstruction [Unknown]
  - Shoulder arthroplasty [Unknown]
  - Crohn^s disease [Unknown]
  - Cystitis [Unknown]
  - Drug effect decreased [Not Recovered/Not Resolved]
  - Diarrhoea [Not Recovered/Not Resolved]
  - Bone pain [Not Recovered/Not Resolved]
  - Pharyngeal ulceration [Not Recovered/Not Resolved]
  - Crohn^s disease [Unknown]
  - Insomnia [Not Recovered/Not Resolved]
